FAERS Safety Report 9475587 (Version 1)
Quarter: 2013Q3

REPORT INFORMATION
  Report Type: Spontaneous
  Country: US (occurrence: None)
  Receive Date: 20130821
  Receipt Date: 20130821
  Transmission Date: 20140515
  Serious: Yes (Other)
  Sender: FDA-Public Use
  Company Number: 2013AP007294

PATIENT
  Age: 77 Year
  Sex: Male

DRUGS (1)
  1. TICLOPIDINE HCL [Suspect]
     Indication: ANTIPLATELET THERAPY

REACTIONS (1)
  - Thrombotic microangiopathy [None]
